FAERS Safety Report 5034483-3 (Version None)
Quarter: 2006Q2

REPORT INFORMATION
  Report Type: 
  Country: None (occurrence: None)
  Receive Date: 20060620
  Receipt Date: 20060612
  Transmission Date: 20061013
  Serious: Yes (Life-Threatening, Hospitalization)
  Sender: FDA-Public Use
  Company Number: 062-C5013-06060240

PATIENT
  Age: 63 Year
  Sex: Male
  Weight: 87.9 kg

DRUGS (2)
  1. CC-5013 (LENALIDOMIDE) (CAPSULES) [Suspect]
     Indication: MULTIPLE MYELOMA
     Dosage: 25 MG DAILY ORAL
     Route: 048
     Dates: end: 20060314
  2. DOXORUBICIN HCL [Suspect]
     Indication: MULTIPLE MYELOMA

REACTIONS (2)
  - PANCYTOPENIA [None]
  - PNEUMOCYSTIS JIROVECI INFECTION [None]
